FAERS Safety Report 10058469 (Version 6)
Quarter: 2016Q3

REPORT INFORMATION
  Report Type: Spontaneous
  Country: US (occurrence: US)
  Receive Date: 20140404
  Receipt Date: 20160822
  Transmission Date: 20161108
  Serious: Yes (Hospitalization, Other)
  Sender: FDA-Public Use
  Company Number: US-009507513-1109USA00850

PATIENT
  Sex: Female
  Weight: 68.27 kg

DRUGS (4)
  1. FOSAMAX [Suspect]
     Active Substance: ALENDRONATE SODIUM
     Indication: OSTEOPOROSIS
     Dosage: UNK
     Route: 048
     Dates: start: 1995, end: 200307
  2. SEROQUEL [Concomitant]
     Active Substance: QUETIAPINE FUMARATE
     Dosage: UNK
     Dates: start: 2003
  3. NEXIUM [Concomitant]
     Active Substance: ESOMEPRAZOLE MAGNESIUM
     Dosage: UNK
     Dates: start: 2003, end: 2010
  4. RECLAST [Concomitant]
     Active Substance: ZOLEDRONIC ACID
     Indication: OSTEOPOROSIS
     Dosage: UNK
     Route: 048
     Dates: start: 200307

REACTIONS (27)
  - Fracture displacement [Unknown]
  - Deformity [Unknown]
  - Arthralgia [Unknown]
  - Fall [Unknown]
  - Bone graft [Unknown]
  - Internal fixation of fracture [Unknown]
  - Femur fracture [Unknown]
  - Device failure [Unknown]
  - Medical device removal [Unknown]
  - Reflux laryngitis [Unknown]
  - Hypothalamo-pituitary disorder [Unknown]
  - Asthma [Unknown]
  - Bruxism [Unknown]
  - Face lift [Unknown]
  - Limb asymmetry [Unknown]
  - Deep vein thrombosis postoperative [Unknown]
  - Internal fixation of fracture [Unknown]
  - Tracheal mass [Unknown]
  - Tinnitus [Unknown]
  - Tendon injury [Unknown]
  - Gastrooesophageal reflux disease [Unknown]
  - Femur fracture [Unknown]
  - Impaired healing [Unknown]
  - Fracture nonunion [Unknown]
  - Weight increased [Unknown]
  - Cough [Unknown]
  - Fracture reduction [Unknown]

NARRATIVE: CASE EVENT DATE: 2003
